FAERS Safety Report 4303288-0 (Version None)
Quarter: 2004Q1

REPORT INFORMATION
  Report Type: 
  Country: None (occurrence: None)
  Receive Date: 20040223
  Receipt Date: 20040216
  Transmission Date: 20041129
  Serious: Yes (Hospitalization)
  Sender: FDA-Public Use
  Company Number: GB-JNJFOC-20040203192

PATIENT
  Sex: Female

DRUGS (9)
  1. REMICADE [Suspect]
     Indication: RHEUMATOID ARTHRITIS
     Dosage: INTRAVENOUS
     Route: 042
     Dates: start: 20020221, end: 20030101
  2. METHOTREXATE [Concomitant]
  3. PREDNISOLONE [Concomitant]
  4. DIHYDROCODEINE (DIHYDROCODEINE) [Concomitant]
  5. FOLIC ACID [Concomitant]
  6. BECLAMETHASONE (BECLOMETASONE) [Concomitant]
  7. SEREVENT [Concomitant]
  8. VENTOLIN [Concomitant]
  9. PYRIDOXINE HCL TAB [Concomitant]

REACTIONS (2)
  - CELLULITIS [None]
  - SEPSIS [None]
